FAERS Safety Report 23856834 (Version 7)
Quarter: 2024Q4

REPORT INFORMATION
  Report Type: Report from Study
  Country: US (occurrence: US)
  Receive Date: 20240515
  Receipt Date: 20241204
  Transmission Date: 20250115
  Serious: Yes (Hospitalization)
  Sender: INSMED
  Company Number: US-INSMED, INC.-2024-01034-US

PATIENT
  Sex: Female

DRUGS (2)
  1. ARIKAYCE [Suspect]
     Active Substance: AMIKACIN
     Indication: Mycobacterial infection
     Dosage: 590 MILLIGRAM, QD
     Route: 055
     Dates: start: 202403, end: 2024
  2. ARIKAYCE [Suspect]
     Active Substance: AMIKACIN
     Dosage: 590 MILLIGRAM, NOT TAKING THE MEDICATION EVERY DAY
     Route: 055
     Dates: start: 2024, end: 2024

REACTIONS (13)
  - Hospitalisation [Unknown]
  - Dehydration [Unknown]
  - Rehabilitation therapy [Unknown]
  - Malnutrition [Not Recovered/Not Resolved]
  - Dyspnoea exertional [Recovered/Resolved]
  - Dizziness [Unknown]
  - Asthenia [Unknown]
  - Weight decreased [Unknown]
  - Malaise [Unknown]
  - Unevaluable event [Unknown]
  - Dyspnoea [Recovered/Resolved]
  - Living in residential institution [Unknown]
  - Off label use [Unknown]

NARRATIVE: CASE EVENT DATE: 20240101
